FAERS Safety Report 21405382 (Version 1)
Quarter: 2022Q4

REPORT INFORMATION
  Report Type: Spontaneous
  Country: IN (occurrence: None)
  Receive Date: 20221004
  Receipt Date: 20221004
  Transmission Date: 20230113
  Serious: Yes (Hospitalization, Other)
  Sender: FDA-Public Use
  Company Number: IN-VistaPharm, Inc.-VER202209-000817

PATIENT
  Age: 22 Year
  Sex: Female

DRUGS (3)
  1. ACETAMINOPHEN\HYDROCODONE [Suspect]
     Active Substance: ACETAMINOPHEN\HYDROCODONE
     Indication: Toothache
     Dosage: 500 MG
     Route: 065
  2. ACECLOFENAC [Suspect]
     Active Substance: ACECLOFENAC
     Indication: Toothache
     Dosage: 100 MG
     Route: 065
  3. NIMESULIDE [Suspect]
     Active Substance: NIMESULIDE
     Indication: Toothache
     Dosage: 100 MG
     Route: 065

REACTIONS (1)
  - Generalised bullous fixed drug eruption [Recovered/Resolved]
